FAERS Safety Report 12446991 (Version 1)
Quarter: 2016Q2

REPORT INFORMATION
  Report Type: Spontaneous
  Country: CA (occurrence: None)
  Receive Date: 20160607
  Receipt Date: 20160607
  Transmission Date: 20160815
  Serious: Yes (Hospitalization)
  Sender: FDA-Public Use
  Company Number: None

PATIENT
  Age: 53 Year
  Sex: Male
  Weight: 94.5 kg

DRUGS (6)
  1. SERAX [Concomitant]
     Active Substance: OXAZEPAM
  2. MEMANTINE HYDROCHLORIDE. [Suspect]
     Active Substance: MEMANTINE HYDROCHLORIDE
     Dates: end: 20160403
  3. DECADRON [Concomitant]
     Active Substance: DEXAMETHASONE
  4. OXAZEPAM. [Concomitant]
     Active Substance: OXAZEPAM
  5. FAMVIR [Concomitant]
     Active Substance: FAMCICLOVIR
  6. HYDRAMORPHON [Concomitant]

REACTIONS (3)
  - Confusional state [None]
  - Delirium [None]
  - Hallucination [None]

NARRATIVE: CASE EVENT DATE: 20160403
